FAERS Safety Report 11832619 (Version 1)
Quarter: 2015Q4

REPORT INFORMATION
  Report Type: Spontaneous
  Country: US (occurrence: US)
  Receive Date: 20151214
  Receipt Date: 20151214
  Transmission Date: 20160305
  Serious: No
  Sender: FDA-Public Use
  Company Number: GXBR2015US000641

PATIENT
  Age: 63 Year
  Sex: Female
  Weight: 56.69 kg

DRUGS (4)
  1. IMIPRAMINE HCL TABLETS USP [Suspect]
     Active Substance: IMIPRAMINE HYDROCHLORIDE
     Indication: IRRITABLE BOWEL SYNDROME
  2. IMIPRAMINE HCL TABLETS USP [Suspect]
     Active Substance: IMIPRAMINE HYDROCHLORIDE
     Indication: MIGRAINE
  3. IMIPRAMINE HCL TABLETS USP [Suspect]
     Active Substance: IMIPRAMINE HYDROCHLORIDE
     Indication: FIBROMYALGIA
  4. IMIPRAMINE HCL TABLETS USP [Suspect]
     Active Substance: IMIPRAMINE HYDROCHLORIDE
     Indication: CYSTITIS INTERSTITIAL
     Dosage: 25 MG, QHS
     Route: 048

REACTIONS (1)
  - Somnolence [Recovered/Resolved]
